FAERS Safety Report 8750202 (Version 3)
Quarter: 2013Q3

REPORT INFORMATION
  Report Type: Spontaneous
  Country: US (occurrence: None)
  Receive Date: 20120810
  Receipt Date: 20130815
  Transmission Date: 20140515
  Serious: Yes (Hospitalization)
  Sender: FDA-Public Use
  Company Number: ADR-2012-00667

PATIENT
  Sex: Male

DRUGS (2)
  1. LIORESAL [Suspect]
     Indication: PAIN
     Dosage: SEE B5
     Route: 037
  2. LIORESAL [Suspect]
     Indication: POST LAMINECTOMY SYNDROME
     Dosage: SEE B5
     Route: 037

REACTIONS (8)
  - Intracranial hypotension [None]
  - Muscle spasticity [None]
  - Fall [None]
  - Condition aggravated [None]
  - Muscle spasms [None]
  - Insomnia [None]
  - Fatigue [None]
  - Device failure [None]
